FAERS Safety Report 9614666 (Version 8)
Quarter: 2014Q1

REPORT INFORMATION
  Report Type: Spontaneous
  Country: US (occurrence: US)
  Receive Date: 20131011
  Receipt Date: 20140102
  Transmission Date: 20141002
  Serious: Yes (Death, Hospitalization, Other)
  Sender: FDA-Public Use
  Company Number: US-JNJFOC-20131006329

PATIENT
  Age: 81 Year
  Sex: Female
  Weight: 71.22 kg

DRUGS (10)
  1. XARELTO [Suspect]
     Indication: CEREBROVASCULAR ACCIDENT PROPHYLAXIS
     Route: 048
     Dates: start: 20120529, end: 2013
  2. XARELTO [Suspect]
     Indication: ATRIAL FIBRILLATION
     Route: 048
     Dates: start: 20120529, end: 2013
  3. SIMVASTATIN [Concomitant]
     Route: 048
     Dates: start: 20130725
  4. FUROSEMIDE [Concomitant]
     Route: 048
     Dates: start: 20130725
  5. LISINOPRIL [Concomitant]
     Route: 048
     Dates: start: 20130725
  6. CARVEDILOL [Concomitant]
     Route: 048
     Dates: start: 20130725
  7. MAGNESIUM OXIDE [Concomitant]
     Route: 048
     Dates: start: 20130725
  8. VITAMIN D3 [Concomitant]
     Route: 048
     Dates: start: 20130725
  9. VITAMIN B12 [Concomitant]
     Route: 048
     Dates: start: 20130725
  10. ALLOPURINOL [Concomitant]
     Route: 048
     Dates: start: 20130725

REACTIONS (3)
  - Cerebral haemorrhage [Fatal]
  - Fall [Unknown]
  - Avulsion fracture [Unknown]
